FAERS Safety Report 4852830-X (Version None)
Quarter: 2005Q4

REPORT INFORMATION
  Report Type: 
  Country: None (occurrence: None)
  Receive Date: 20051212
  Receipt Date: 20051212
  Transmission Date: 20060501
  Serious: Yes (Other)
  Sender: FDA-Public Use
  Company Number: None

PATIENT
  Age: 59 Year
  Sex: Male
  Weight: 99.7913 kg

DRUGS (1)
  1. CELEBREX [Suspect]
     Indication: ARTHRALGIA
     Dosage: 200 MG ONCE DAILY PO
     Route: 048

REACTIONS (4)
  - DIFFICULTY IN WALKING [None]
  - DYSPNOEA [None]
  - DYSPNOEA EXERTIONAL [None]
  - PALPITATIONS [None]
